FAERS Safety Report 5979574-5 (Version None)
Quarter: 2008Q4

REPORT INFORMATION
  Report Type: 
  Country: None (occurrence: None)
  Receive Date: 20081128
  Receipt Date: 20081117
  Transmission Date: 20090506
  Serious: Yes (Hospitalization, Disabling, Other)
  Sender: FDA-Public Use
  Company Number: OSCN-NO-0810S-0579

PATIENT
  Age: 44 Year
  Sex: Male
  Weight: 70 kg

DRUGS (1)
  1. OMNISCAN [Suspect]
     Indication: DRUG USE FOR UNKNOWN INDICATION
     Dosage: 14 ML, SINGLE DOSE, I.V.
     Route: 042
     Dates: start: 20061215, end: 20061215

REACTIONS (7)
  - ABASIA [None]
  - CELLULITIS [None]
  - FIBROSIS [None]
  - FLUID OVERLOAD [None]
  - INDURATION [None]
  - INFLAMMATION [None]
  - OEDEMA PERIPHERAL [None]
